FAERS Safety Report 6268966-5 (Version None)
Quarter: 2009Q3

REPORT INFORMATION
  Report Type: 
  Country: None (occurrence: None)
  Receive Date: 20090715
  Receipt Date: 20090715
  Transmission Date: 20100115
  Serious: Yes (Hospitalization, Disabling, Other)
  Sender: FDA-Public Use
  Company Number: US-ROXANE LABORATORIES, INC.-2009-RO-00651RO

PATIENT
  Age: 70 Year
  Sex: Female

DRUGS (13)
  1. PREDNISONE TAB [Suspect]
     Indication: CHRONIC OBSTRUCTIVE PULMONARY DISEASE
     Dosage: 360 MG
     Route: 048
     Dates: start: 20090306
  2. PREDNISONE TAB [Suspect]
     Dosage: 300 MG
     Route: 048
  3. PREDNISONE TAB [Suspect]
     Dosage: 240 MG
     Route: 048
  4. PREDNISONE TAB [Suspect]
     Dosage: 180 MG
     Route: 048
  5. PREDNISONE TAB [Suspect]
     Dosage: 120 MG
     Route: 048
  6. PREDNISONE TAB [Suspect]
     Dosage: 60 MG
     Route: 048
     Dates: end: 20090411
  7. MULTI-VITAMIN [Concomitant]
  8. VITAMIN D3 [Concomitant]
  9. CRESTOR [Concomitant]
  10. CALCIUM [Concomitant]
  11. METOPROLOL TARTRATE [Concomitant]
  12. NEXIUM [Concomitant]
  13. XANAX [Concomitant]

REACTIONS (15)
  - ALOPECIA [None]
  - ARTHRALGIA [None]
  - BALANCE DISORDER [None]
  - CATARACT [None]
  - DISABILITY [None]
  - DRY SKIN [None]
  - DYSPNOEA [None]
  - GRIP STRENGTH DECREASED [None]
  - MUSCULAR WEAKNESS [None]
  - NECK PAIN [None]
  - OEDEMA PERIPHERAL [None]
  - OVERDOSE [None]
  - PAIN IN EXTREMITY [None]
  - PNEUMONIA [None]
  - PRURITUS [None]
